FAERS Safety Report 24194896 (Version 2)
Quarter: 2024Q3

REPORT INFORMATION
  Report Type: Spontaneous
  Country: US (occurrence: None)
  Receive Date: 20240809
  Receipt Date: 20240906
  Transmission Date: 20241016
  Serious: Yes (Other)
  Sender: ASTRAZENECA
  Company Number: 2024A176325

PATIENT
  Age: 23570 Day
  Sex: Male
  Weight: 106.6 kg

DRUGS (4)
  1. FARXIGA [Suspect]
     Active Substance: DAPAGLIFLOZIN PROPANEDIOL
     Indication: Diabetes mellitus
     Dosage: 10.0MG UNKNOWN
     Route: 048
     Dates: start: 20240610, end: 20240725
  2. FARXIGA [Suspect]
     Active Substance: DAPAGLIFLOZIN PROPANEDIOL
     Indication: Diabetes mellitus
     Dosage: 10.0MG UNKNOWN
     Route: 048
     Dates: start: 20240615, end: 20240728
  3. FLUCONAZOLE [Concomitant]
     Active Substance: FLUCONAZOLE
  4. CIPROFLOXACIN [Concomitant]
     Active Substance: CIPROFLOXACIN

REACTIONS (9)
  - Urine abnormality [Recovering/Resolving]
  - Renal failure [Recovering/Resolving]
  - Blood urine present [Recovering/Resolving]
  - Pruritus [Recovered/Resolved]
  - Semen analysis abnormal [Recovered/Resolved]
  - Dysuria [Recovered/Resolved]
  - Fungal infection [Recovered/Resolved]
  - Cystitis [Recovered/Resolved]
  - Dysuria [Recovered/Resolved]

NARRATIVE: CASE EVENT DATE: 20240722
